FAERS Safety Report 18563256 (Version 1)
Quarter: 2020Q4

REPORT INFORMATION
  Report Type: Spontaneous
  Country: PT (occurrence: PT)
  Receive Date: 20201201
  Receipt Date: 20201201
  Transmission Date: 20210114
  Serious: Yes (Other)
  Sender: FDA-Public Use
  Company Number: PT-AUROBINDO-AUR-APL-2020-058881

PATIENT
  Age: 34 Year
  Sex: Female

DRUGS (3)
  1. LETROZOLE. [Suspect]
     Active Substance: LETROZOLE
     Indication: PRODUCT USED FOR UNKNOWN INDICATION
     Dosage: 2.5 MILLIGRAM, ONCE A DAY
     Route: 065
     Dates: start: 201701
  2. ZOLEDRONIC ACID [Suspect]
     Active Substance: ZOLEDRONIC ACID
     Indication: PRODUCT USED FOR UNKNOWN INDICATION
     Dosage: 4 MILLIGRAM,QMO (EVERY 28 DAYS)
     Route: 065
     Dates: start: 201701
  3. GOSERELIN [Suspect]
     Active Substance: GOSERELIN
     Indication: PRODUCT USED FOR UNKNOWN INDICATION
     Dosage: 3.6 MILLIGRAM,QMO (EVERY 28 DAYS)
     Route: 065
     Dates: start: 201701

REACTIONS (8)
  - Metastases to bone [Unknown]
  - Carbohydrate antigen 15-3 increased [Unknown]
  - Bone pain [Unknown]
  - Metastases to liver [Unknown]
  - Disease progression [Unknown]
  - Metastases to lung [Unknown]
  - Quality of life decreased [Unknown]
  - Cough [Unknown]

NARRATIVE: CASE EVENT DATE: 201901
